FAERS Safety Report 13408917 (Version 1)
Quarter: 2017Q2

REPORT INFORMATION
  Report Type: Spontaneous
  Country: US (occurrence: US)
  Receive Date: 20170406
  Receipt Date: 20170406
  Transmission Date: 20170830
  Serious: Yes (Other)
  Sender: FDA-Public Use
  Company Number: None

PATIENT
  Age: 16 Year
  Sex: Female
  Weight: 45 kg

DRUGS (7)
  1. SINGULAIR [Concomitant]
     Active Substance: MONTELUKAST SODIUM
  2. BROMPHENIRAMINE MALEATE\PSEUDOEPHEDRINE HYDROCHLORIDE [Concomitant]
     Active Substance: BROMPHENIRAMINE MALEATE\PSEUDOEPHEDRINE HYDROCHLORIDE
  3. DULERA [Suspect]
     Active Substance: FORMOTEROL FUMARATE DIHYDRATE\MOMETASONE FUROATE
     Indication: ASTHMA
     Dosage: 2 PUFF(S); TWICE A DAY RESPIRATORY (INHALATION)?
     Route: 055
     Dates: start: 20170331, end: 20170404
  4. MOTRIN [Concomitant]
     Active Substance: IBUPROFEN
  5. ALBUTEROL. [Concomitant]
     Active Substance: ALBUTEROL
  6. AZELASTINE HCL [Concomitant]
     Active Substance: AZELASTINE HYDROCHLORIDE
  7. ZYRTEC [Concomitant]
     Active Substance: CETIRIZINE HYDROCHLORIDE

REACTIONS (4)
  - Pyrexia [None]
  - Dizziness [None]
  - Anxiety [None]
  - Somnolence [None]

NARRATIVE: CASE EVENT DATE: 20170404
